FAERS Safety Report 7463881-3 (Version None)
Quarter: 2011Q2

REPORT INFORMATION
  Report Type: 
  Country: None (occurrence: None)
  Receive Date: 20110506
  Receipt Date: 20110501
  Transmission Date: 20111010
  Serious: Yes (Hospitalization, Other)
  Sender: FDA-Public Use
  Company Number: US-SANOFI-AVENTIS-2011SA027345

PATIENT
  Age: 63 Year
  Sex: Female

DRUGS (7)
  1. LANTUS [Suspect]
  2. BUMEX [Concomitant]
  3. GLUCOTROL XL [Concomitant]
  4. LANTUS [Suspect]
     Dosage: DOSE:80 UNIT(S)
     Route: 058
  5. METFORMIN [Concomitant]
  6. DIOVANE [Concomitant]
  7. LORAZEPAM [Concomitant]

REACTIONS (8)
  - WEIGHT DECREASED [None]
  - APHAGIA [None]
  - COUGH [None]
  - BLOOD GLUCOSE INCREASED [None]
  - DRUG DOSE OMISSION [None]
  - RASH GENERALISED [None]
  - LIP SWELLING [None]
  - DYSGEUSIA [None]
